FAERS Safety Report 4791757-9 (Version None)
Quarter: 2005Q4

REPORT INFORMATION
  Report Type: 
  Country: None (occurrence: None)
  Receive Date: 20051004
  Receipt Date: 20050922
  Transmission Date: 20060501
  Serious: Yes (Other)
  Sender: FDA-Public Use
  Company Number: 2005-01849

PATIENT
  Age: 48 Year
  Sex: Male

DRUGS (1)
  1. IMMUCYST [Suspect]
     Indication: URETERIC CANCER
     Dosage: I.VES., BLADDER
     Dates: end: 20050801

REACTIONS (1)
  - DISSEMINATED TUBERCULOSIS [None]
